FAERS Safety Report 21469573 (Version 2)
Quarter: 2022Q4

REPORT INFORMATION
  Report Type: Spontaneous
  Country: ES (occurrence: ES)
  Receive Date: 20221018
  Receipt Date: 20221028
  Transmission Date: 20230113
  Serious: Yes (Death, Hospitalization, Other)
  Sender: FDA-Public Use
  Company Number: ES-INCYTE CORPORATION-2022IN009915

PATIENT

DRUGS (5)
  1. TAFASITAMAB [Suspect]
     Active Substance: TAFASITAMAB
     Indication: Lymphoma
     Dosage: UNK
     Route: 065
  2. TAFASITAMAB [Suspect]
     Active Substance: TAFASITAMAB
     Indication: Diffuse large B-cell lymphoma recurrent
     Dosage: 840 MILLIGRAM DAYS 1,4,8,15,22 OF CYCLE 1 DAYS 1,8,15 AND 22 CYCLES 2 AND 3
     Route: 042
     Dates: start: 20220629
  3. TAFASITAMAB [Suspect]
     Active Substance: TAFASITAMAB
     Dosage: 840 MILLIGRAM DAYS 1,4,8,15,22 OF CYCLE 1 DAYS 1,8,15 AND 22 CYCLES 2 AND 3
     Route: 042
     Dates: start: 20220812
  4. LENALIDOMIDE [Suspect]
     Active Substance: LENALIDOMIDE
     Indication: Lymphoma
     Dosage: UNK
     Route: 065
  5. LENALIDOMIDE [Suspect]
     Active Substance: LENALIDOMIDE
     Dosage: UNK
     Route: 065

REACTIONS (3)
  - Diffuse large B-cell lymphoma [Fatal]
  - Disease progression [Fatal]
  - Pyrexia [Unknown]
